FAERS Safety Report 24561129 (Version 3)
Quarter: 2024Q4

REPORT INFORMATION
  Report Type: Spontaneous
  Country: TR (occurrence: TR)
  Receive Date: 20241029
  Receipt Date: 20241211
  Transmission Date: 20250114
  Serious: No
  Sender: TOLMAR
  Company Number: TR-RECORDATI-2024008187

PATIENT
  Age: 70 Year

DRUGS (1)
  1. ELIGARD [Suspect]
     Active Substance: LEUPROLIDE ACETATE
     Indication: Prostate cancer
     Dosage: 22.5 MILLIGRAM
     Dates: start: 20241010

REACTIONS (2)
  - Intercepted product preparation error [Unknown]
  - Device leakage [Unknown]

NARRATIVE: CASE EVENT DATE: 20241010
